FAERS Safety Report 8281359-4 (Version None)
Quarter: 2012Q2

REPORT INFORMATION
  Report Type: 
  Country: None (occurrence: None)
  Receive Date: 20120413
  Receipt Date: 20120411
  Transmission Date: 20120825
  Serious: Yes (Other)
  Sender: FDA-Public Use
  Company Number: US-PFIZER INC-2012013567

PATIENT
  Sex: Female
  Weight: 83.9 kg

DRUGS (6)
  1. IBUPROFEN (ADVIL) [Concomitant]
     Dosage: UNK
  2. CHANTIX [Suspect]
     Dosage: 0.5 MG, 1X/DAY
     Route: 048
     Dates: start: 20111201
  3. SPIRIVA [Concomitant]
     Dosage: UNK
  4. CHANTIX [Suspect]
     Dosage: UNK
     Route: 048
  5. FUROSEMIDE [Concomitant]
     Dosage: UNK
  6. CHANTIX [Suspect]
     Dosage: UNK
     Dates: start: 20120201

REACTIONS (4)
  - HYPERSOMNIA [None]
  - DRUG INEFFECTIVE [None]
  - ASTHENIA [None]
  - DEPRESSION [None]
